FAERS Safety Report 5141857-9 (Version None)
Quarter: 2006Q4

REPORT INFORMATION
  Report Type: 
  Country: None (occurrence: None)
  Receive Date: 20061027
  Receipt Date: 20061019
  Transmission Date: 20070319
  Serious: Yes (Life-Threatening, Hospitalization)
  Sender: FDA-Public Use
  Company Number: 2006-149247-NL

PATIENT
  Age: 26 Year
  Sex: Female

DRUGS (10)
  1. ROCURONIUM BROMIDE [Suspect]
     Indication: FEELING OF RELAXATION
     Dosage: 35 MG ONCE INTRAVENOUS (NOS)
     Route: 042
     Dates: start: 20061013, end: 20061013
  2. ROCURONIUM BROMIDE [Suspect]
     Indication: GENERAL ANAESTHESIA
     Dosage: 35 MG ONCE INTRAVENOUS (NOS)
     Route: 042
     Dates: start: 20061013, end: 20061013
  3. SEVOFLURANE [Concomitant]
  4. THIOPENTAL SODIUM [Concomitant]
  5. FENTANYL CITRATE [Concomitant]
  6. PROPOFOL [Concomitant]
  7. ACETAMINOPHEN [Concomitant]
  8. MIDAZOLAM [Concomitant]
  9. INSULIN [Concomitant]
  10. GRANISETRON [Concomitant]

REACTIONS (4)
  - ANAPHYLACTIC REACTION [None]
  - BRONCHIAL OBSTRUCTION [None]
  - HYPOTENSION [None]
  - URTICARIA GENERALISED [None]
